FAERS Safety Report 9815737 (Version 1)
Quarter: 2014Q1

REPORT INFORMATION
  Report Type: Spontaneous
  Country: BR (occurrence: None)
  Receive Date: 20140110
  Receipt Date: 20140110
  Transmission Date: 20141002
  Serious: Yes (Other)
  Sender: FDA-Public Use
  Company Number: KAD201312-001816

PATIENT
  Age: 78 Year
  Sex: Female

DRUGS (7)
  1. TOPOTECAN (TOPOTECAN) [Suspect]
     Indication: LEUKAEMIA
  2. CYTARABINE [Suspect]
  3. FLUDARABINE (FLUDARABINE) [Suspect]
  4. CYCLOPHOSPHAMIDE (CYCLOPHOSPHAMIDE) [Suspect]
  5. MYCOPHENOLATE MOFETIL (MYCOPHENOLATE MOFETIL) [Suspect]
  6. CYCLOSPORINE [Suspect]
  7. AZACITIDINE [Suspect]

REACTIONS (6)
  - Acute graft versus host disease in skin [None]
  - Cognitive disorder [None]
  - Malnutrition [None]
  - Anaemia [None]
  - Leukocytosis [None]
  - Thrombocytopenia [None]
